FAERS Safety Report 5234746-2 (Version None)
Quarter: 2007Q1

REPORT INFORMATION
  Report Type: 
  Country: None (occurrence: None)
  Receive Date: 20070209
  Receipt Date: 20070129
  Transmission Date: 20070707
  Serious: Yes (Hospitalization, Other)
  Sender: FDA-Public Use
  Company Number: US-PFIZER INC-2006063719

PATIENT
  Sex: Female

DRUGS (7)
  1. NEURONTIN [Suspect]
     Indication: BIPOLAR DISORDER
     Dates: start: 20020706, end: 20030430
  2. ZYPREXA [Suspect]
  3. KLONOPIN [Suspect]
  4. WELLBUTRIN SR [Suspect]
  5. SEROQUEL [Suspect]
  6. LEVOXYL [Concomitant]
  7. ALLEGRA [Concomitant]

REACTIONS (4)
  - DRUG INEFFECTIVE [None]
  - ELECTROLYTE IMBALANCE [None]
  - RESPIRATORY FAILURE [None]
  - SUICIDE ATTEMPT [None]
